FAERS Safety Report 8085293-4 (Version None)
Quarter: 2012Q1

REPORT INFORMATION
  Report Type: 
  Country: None (occurrence: None)
  Receive Date: 20120128
  Receipt Date: 20120123
  Transmission Date: 20120608
  Serious: Yes (Other)
  Sender: FDA-Public Use
  Company Number: BE-ABBOTT-11P-013-0844078-00

PATIENT
  Sex: Female
  Weight: 83 kg

DRUGS (7)
  1. HUMIRA [Suspect]
     Indication: POLYARTHRITIS
  2. NOBITEN [Concomitant]
     Indication: HYPERTENSION
     Dates: start: 20070801
  3. COMBI RHUMAL [Concomitant]
     Indication: PROPHYLAXIS
     Dosage: 2/DAY
     Dates: start: 20101101
  4. OMEPRAZOLE [Concomitant]
     Indication: GASTROINTESTINAL DISORDER
     Dates: start: 20080401
  5. HUMIRA [Suspect]
     Indication: PSORIATIC ARTHROPATHY
     Dates: start: 20071129
  6. OMEPRAZOLE [Concomitant]
     Indication: PROPHYLAXIS
  7. COMBI RHUMAL [Concomitant]
     Indication: BACILLUS INFECTION

REACTIONS (1)
  - ROTATOR CUFF SYNDROME [None]
